FAERS Safety Report 15194925 (Version 1)
Quarter: 2018Q3

REPORT INFORMATION
  Report Type: Spontaneous
  Country: AU (occurrence: AU)
  Receive Date: 20180725
  Receipt Date: 20180725
  Transmission Date: 20181010
  Serious: Yes (Hospitalization, Other)
  Sender: FDA-Public Use
  Company Number: AU-ELI_LILLY_AND_COMPANY-AU201712000680

PATIENT
  Sex: Male

DRUGS (4)
  1. COGENTIN [Concomitant]
     Active Substance: BENZTROPINE MESYLATE
     Dosage: 2 MG, PRN
     Route: 065
  2. ZYPREXA [Concomitant]
     Active Substance: OLANZAPINE
     Dosage: 10 MG, PRN
     Route: 065
  3. CLOPIXOL                           /00876704/ [Concomitant]
     Active Substance: ZUCLOPENTHIXOL ACETATE
     Dosage: 200 MG, 2/M
     Route: 030
  4. ZYPREXA RELPREVV [Suspect]
     Active Substance: OLANZAPINE PAMOATE
     Indication: SCHIZOPHRENIA
     Dosage: 405 MG, UNKNOWN
     Route: 030

REACTIONS (8)
  - Confusional state [Unknown]
  - Disorientation [Unknown]
  - Fine motor skill dysfunction [Unknown]
  - Post-injection delirium sedation syndrome [Unknown]
  - Delirium [Unknown]
  - Dysarthria [Unknown]
  - Agitation [Unknown]
  - Restlessness [Unknown]

NARRATIVE: CASE EVENT DATE: 20171130
